FAERS Safety Report 7965937-5 (Version None)
Quarter: 2011Q4

REPORT INFORMATION
  Report Type: 
  Country: None (occurrence: None)
  Receive Date: 20111208
  Receipt Date: 20111206
  Transmission Date: 20120403
  Serious: Yes (Other)
  Sender: FDA-Public Use
  Company Number: DE-GLAXOSMITHKLINE-D0073705A

PATIENT
  Sex: Female

DRUGS (1)
  1. PROMACTA [Suspect]
     Route: 048

REACTIONS (4)
  - LISTLESS [None]
  - FATIGUE [None]
  - BLOOD BILIRUBIN INCREASED [None]
  - ASTHENIA [None]
